FAERS Safety Report 5192765-9 (Version None)
Quarter: 2006Q4

REPORT INFORMATION
  Report Type: 
  Country: None (occurrence: None)
  Receive Date: 20061220
  Receipt Date: 20061204
  Transmission Date: 20070319
  Serious: Yes (Life-Threatening, Hospitalization)
  Sender: FDA-Public Use
  Company Number: 2006AL003813

PATIENT
  Age: 45 Year
  Sex: Male

DRUGS (3)
  1. CITALOPRAM HYDROBROMIDE [Suspect]
     Indication: ANXIETY
     Dosage: 20 MG; QD; PO
     Route: 048
     Dates: start: 20051118
  2. CLARITHROMYCIN [Concomitant]
  3. IBUPROFEN [Concomitant]

REACTIONS (1)
  - CIRCULATORY COLLAPSE [None]
